FAERS Safety Report 4692224-3 (Version None)
Quarter: 2005Q2

REPORT INFORMATION
  Report Type: 
  Country: None (occurrence: None)
  Receive Date: 20050614
  Receipt Date: 20050601
  Transmission Date: 20051028
  Serious: Yes (Hospitalization)
  Sender: FDA-Public Use
  Company Number: DE-2005-009552

PATIENT
  Age: 65 Year
  Sex: Male

DRUGS (4)
  1. ULTRAVIST 370 [Suspect]
     Indication: CATHETERISATION CARDIAC
     Dosage: 120 ML, DOSE
     Dates: start: 20050301, end: 20050301
  2. ACE INHIBITOR [Concomitant]
  3. HMG COA REDUCTASE INHIBITORS [Concomitant]
  4. BETA BLOCKING AGENTS [Concomitant]

REACTIONS (11)
  - ANAEMIA [None]
  - ANOREXIA [None]
  - BLOOD BILIRUBIN INCREASED [None]
  - BLOOD IRON INCREASED [None]
  - DIARRHOEA [None]
  - GAMMA-GLUTAMYLTRANSFERASE INCREASED [None]
  - HAEMOLYSIS [None]
  - HAEMOSIDEROSIS [None]
  - RENAL FUNCTION TEST ABNORMAL [None]
  - TRANSAMINASES INCREASED [None]
  - WEIGHT DECREASED [None]
